FAERS Safety Report 18148502 (Version 1)
Quarter: 2020Q3

REPORT INFORMATION
  Report Type: Spontaneous
  Country: GB (occurrence: GB)
  Receive Date: 20200814
  Receipt Date: 20200814
  Transmission Date: 20201103
  Serious: Yes (Other)
  Sender: FDA-Public Use
  Company Number: GB-AMGEN-GBRSP2020128128

PATIENT
  Sex: Male

DRUGS (2)
  1. PROGRAF [Concomitant]
     Active Substance: TACROLIMUS
     Dosage: 0.5 MILLIGRAM, BID
  2. MIMPARA [Suspect]
     Active Substance: CINACALCET HYDROCHLORIDE
     Indication: PRODUCT USED FOR UNKNOWN INDICATION
     Dosage: 60 MILLIGRAM, QD
     Route: 065
     Dates: start: 20190304

REACTIONS (1)
  - Neoplasm malignant [Unknown]
